FAERS Safety Report 8549485 (Version 3)
Quarter: 2013Q3

REPORT INFORMATION
  Report Type: Spontaneous
  Country: US (occurrence: US)
  Receive Date: 20120430
  Receipt Date: 20130828
  Transmission Date: 20140515
  Serious: Yes (Life-Threatening, Hospitalization, Disabling, Other)
  Sender: FDA-Public Use
  Company Number: 2012P1010991

PATIENT
  Age: 62 Year
  Sex: Female

DRUGS (2)
  1. LAMOTRIGINE [Suspect]
     Indication: DEPRESSION
     Dates: start: 20100331, end: 2010
  2. EFFEXOR [Suspect]
     Indication: DEPRESSION

REACTIONS (40)
  - Stevens-Johnson syndrome [Recovered/Resolved with Sequelae]
  - Toxic epidermal necrolysis [Recovered/Resolved with Sequelae]
  - Off label use [Unknown]
  - Septic shock [Recovered/Resolved]
  - Respiratory failure [Recovered/Resolved]
  - Pneumonia staphylococcal [Recovered/Resolved]
  - Deep vein thrombosis [Recovered/Resolved]
  - Pleural effusion [Recovered/Resolved]
  - Renal failure acute [Recovered/Resolved]
  - Anaemia [Recovered/Resolved]
  - Coagulopathy [Recovered/Resolved]
  - Atrial fibrillation [Recovered/Resolved]
  - Ileus paralytic [Recovered/Resolved]
  - Heparin-induced thrombocytopenia [Recovered/Resolved]
  - Iridocele [Unknown]
  - Corneal opacity [Unknown]
  - Keloid scar [Not Recovered/Not Resolved]
  - Mental status changes [Not Recovered/Not Resolved]
  - Staphylococcal infection [Recovered/Resolved]
  - Dysphagia [Not Recovered/Not Resolved]
  - Blindness [Not Recovered/Not Resolved]
  - Ulcerative keratitis [Unknown]
  - Blepharitis [Unknown]
  - Injury [Unknown]
  - Poisoning [Unknown]
  - Sepsis [Unknown]
  - Renal failure acute [Unknown]
  - Renal tubular necrosis [Unknown]
  - Disseminated intravascular coagulation [Unknown]
  - Pneumonia pseudomonal [Unknown]
  - Pleural disorder [Unknown]
  - Device related infection [Unknown]
  - Procedural complication [Unknown]
  - Anaemia of chronic disease [Unknown]
  - Iridocyclitis [Unknown]
  - Conjunctival haemorrhage [Unknown]
  - Cataract [Unknown]
  - Symblepharon [Not Recovered/Not Resolved]
  - Keratopathy [Not Recovered/Not Resolved]
  - Lacrimation decreased [Not Recovered/Not Resolved]
